FAERS Safety Report 6062457-2 (Version None)
Quarter: 2009Q1

REPORT INFORMATION
  Report Type: 
  Country: None (occurrence: None)
  Receive Date: 20090203
  Receipt Date: 20090102
  Transmission Date: 20090719
  Serious: No
  Sender: FDA-Public Use
  Company Number: US-BAYER-200910110NA

PATIENT
  Age: 28 Year
  Sex: Female
  Weight: 66 kg

DRUGS (1)
  1. MIRENA [Suspect]
     Indication: CONTRACEPTION
     Route: 015
     Dates: start: 20080601

REACTIONS (7)
  - ABDOMINAL DISTENSION [None]
  - FEELING ABNORMAL [None]
  - INTRA-UTERINE CONTRACEPTIVE DEVICE EXPELLED [None]
  - NAUSEA [None]
  - PREGNANCY TEST POSITIVE [None]
  - PREGNANCY WITH CONTRACEPTIVE DEVICE [None]
  - PROCEDURAL PAIN [None]
